FAERS Safety Report 8113780-9 (Version None)
Quarter: 2012Q1

REPORT INFORMATION
  Report Type: 
  Country: None (occurrence: None)
  Receive Date: 20120203
  Receipt Date: 20120130
  Transmission Date: 20120608
  Serious: No
  Sender: FDA-Public Use
  Company Number: US-PFIZER INC-2012027255

PATIENT
  Sex: Female
  Weight: 78.005 kg

DRUGS (2)
  1. EFFEXOR XR [Suspect]
     Indication: DEPRESSION
     Dosage: 150 MG, DAILY
     Dates: start: 20080401, end: 20120127
  2. ADDERALL 5 [Suspect]
     Indication: DISTURBANCE IN ATTENTION
     Dosage: 20 MG, 3X/DAY

REACTIONS (1)
  - WITHDRAWAL SYNDROME [None]
